FAERS Safety Report 7721465-3 (Version None)
Quarter: 2011Q3

REPORT INFORMATION
  Report Type: 
  Country: None (occurrence: None)
  Receive Date: 20110831
  Receipt Date: 20110826
  Transmission Date: 20111222
  Serious: Yes (Hospitalization)
  Sender: FDA-Public Use
  Company Number: FR-ASTRAZENECA-2011SE51487

PATIENT
  Age: 88 Year
  Sex: Male

DRUGS (4)
  1. METFORMIN HCL [Concomitant]
     Indication: DIABETES MELLITUS
  2. INSULIN [Suspect]
     Indication: DIABETES MELLITUS
  3. ASPIRIN [Concomitant]
  4. ZOLADEX [Suspect]
     Indication: PROSTATE CANCER
     Route: 058
     Dates: start: 20100201

REACTIONS (3)
  - MYALGIA [None]
  - DIABETES MELLITUS INADEQUATE CONTROL [None]
  - MALAISE [None]
